FAERS Safety Report 5191903-1 (Version None)
Quarter: 2006Q4

REPORT INFORMATION
  Report Type: 
  Country: None (occurrence: None)
  Receive Date: 20061220
  Receipt Date: 20061207
  Transmission Date: 20070319
  Serious: Yes (Hospitalization)
  Sender: FDA-Public Use
  Company Number: 2006BI006783

PATIENT
  Age: 54 Year
  Sex: Female

DRUGS (1)
  1. AVONEX [Suspect]
     Indication: MULTIPLE SCLEROSIS
     Dosage: 30 UG; QW;
     Dates: start: 19961001, end: 20060301

REACTIONS (5)
  - CELLULITIS [None]
  - CYSTITIS [None]
  - ECONOMIC PROBLEM [None]
  - MULTIPLE SCLEROSIS RELAPSE [None]
  - TREATMENT NONCOMPLIANCE [None]
